FAERS Safety Report 7050300-4 (Version None)
Quarter: 2010Q4

REPORT INFORMATION
  Report Type: 
  Country: None (occurrence: None)
  Receive Date: 20101018
  Receipt Date: 20101007
  Transmission Date: 20110411
  Serious: Yes (Life-Threatening, Hospitalization)
  Sender: FDA-Public Use
  Company Number: GXKR2010FR11406

PATIENT
  Age: 51 Year
  Sex: Male

DRUGS (9)
  1. FLUOROURACIL [Suspect]
     Indication: LUNG NEOPLASM MALIGNANT
     Dosage: 46 H
  2. FOLINIC ACID [Concomitant]
  3. IRINOTECAN HCL [Concomitant]
  4. CISPLATIN [Concomitant]
  5. DOCETAXEL [Concomitant]
  6. IFOSFAMIDE [Concomitant]
  7. GEMCITABINE [Concomitant]
  8. TARCEVA [Concomitant]
  9. ALIMTA [Concomitant]

REACTIONS (6)
  - CARDIOGENIC SHOCK [None]
  - CARDIOTOXICITY [None]
  - CHEST PAIN [None]
  - ELECTROCARDIOGRAM QT PROLONGED [None]
  - ELECTROCARDIOGRAM ST SEGMENT ELEVATION [None]
  - LEFT VENTRICULAR DYSFUNCTION [None]
